FAERS Safety Report 9790864 (Version 1)
Quarter: 2013Q4

REPORT INFORMATION
  Report Type: Spontaneous
  Country: DK (occurrence: DE)
  Receive Date: 20131231
  Receipt Date: 20131231
  Transmission Date: 20140711
  Serious: Yes (Other)
  Sender: FDA-Public Use
  Company Number: DE-FRI-1000052510

PATIENT
  Age: 29 Year
  Sex: Female
  Weight: 67 kg

DRUGS (6)
  1. CITALOPRAM [Suspect]
     Indication: DEPRESSION
     Dosage: 30 MG
     Route: 048
     Dates: start: 20091009
  2. CITALOPRAM [Suspect]
     Dosage: 20 MG
     Route: 048
     Dates: end: 20100426
  3. AMITRIPTYLINE [Suspect]
     Indication: DEPRESSION
     Dosage: 75 MG
     Route: 048
     Dates: start: 20100426, end: 20100718
  4. PARACETAMOL [Concomitant]
     Indication: HEADACHE
     Route: 048
  5. FOLIO [Concomitant]
     Indication: PROPHYLAXIS OF NEURAL TUBE DEFECT
     Dosage: 0.4 MG
     Route: 048
     Dates: end: 20100316
  6. DIAZEPAM [Concomitant]
     Indication: DEPRESSION
     Dosage: 2 MG
     Route: 048
     Dates: start: 20100506

REACTIONS (2)
  - Glucose tolerance test abnormal [Unknown]
  - Caesarean section [Unknown]
